FAERS Safety Report 11644384 (Version 5)
Quarter: 2016Q1

REPORT INFORMATION
  Report Type: Report from Study
  Country: PT (occurrence: PT)
  Receive Date: 20151020
  Receipt Date: 20160205
  Transmission Date: 20160525
  Serious: Yes (Other)
  Sender: FDA-Public Use
  Company Number: PT-ABBVIE-15K-130-1481957-00

PATIENT
  Age: 30 Year
  Sex: Female

DRUGS (5)
  1. LEPICORTINOLO [Concomitant]
     Active Substance: PREDNISOLONE
     Indication: CROHN^S DISEASE
     Route: 048
     Dates: end: 201508
  2. HUMIRA [Suspect]
     Active Substance: ADALIMUMAB
     Indication: CROHN^S DISEASE
     Dosage: WEEK 0, INDUCTION DOSE
     Route: 058
     Dates: start: 20150520, end: 20150520
  3. HUMIRA [Suspect]
     Active Substance: ADALIMUMAB
     Dosage: MAINTENANCE DOSE
     Route: 058
     Dates: start: 20150617, end: 20151207
  4. HUMIRA [Suspect]
     Active Substance: ADALIMUMAB
     Dosage: WEEK 2, INDUCTION DOSE
     Route: 058
     Dates: start: 20150603, end: 20150603
  5. IMURAN [Concomitant]
     Active Substance: AZATHIOPRINE
     Indication: CROHN^S DISEASE
     Route: 048
     Dates: start: 2010

REACTIONS (11)
  - Drug ineffective [Not Recovered/Not Resolved]
  - Herpes ophthalmic [Recovered/Resolved]
  - Diarrhoea [Recovered/Resolved]
  - Urinary tract infection [Recovered/Resolved]
  - Vaginal infection [Recovered/Resolved]
  - Nephritis [Unknown]
  - Vomiting [Recovered/Resolved]
  - Asthenia [Recovered/Resolved]
  - Red blood cells urine positive [Unknown]
  - Intestinal stenosis [Not Recovered/Not Resolved]
  - Pyelocaliectasis [Recovering/Resolving]

NARRATIVE: CASE EVENT DATE: 2015
